FAERS Safety Report 9741439 (Version 2)
Quarter: 2014Q2

REPORT INFORMATION
  Report Type: Spontaneous
  Country: BE (occurrence: BE)
  Receive Date: 20131209
  Receipt Date: 20140611
  Transmission Date: 20141212
  Serious: Yes (Life-Threatening, Hospitalization)
  Sender: FDA-Public Use
  Company Number: PHHY2013BE142940

PATIENT
  Age: 60 Year
  Sex: Male

DRUGS (8)
  1. CERTICAN [Suspect]
     Indication: LIVER TRANSPLANT
     Dosage: 2 DF, UNK
     Route: 048
     Dates: start: 20130920
  2. TACROLIMUS [Concomitant]
     Indication: PROPHYLAXIS AGAINST TRANSPLANT REJECTION
     Dosage: UNK
  3. APOCARD [Concomitant]
     Dosage: 150 MG (1 TABLET), PER DAY
     Route: 048
     Dates: start: 20130920
  4. ASAFLOW [Concomitant]
     Dosage: 80 MG (1 TABLET), PER DAY
     Route: 048
  5. EMCONCOR [Concomitant]
     Dosage: 2.5 MG (1 TABLET), PER DAY
     Route: 048
  6. L-THYROXINE [Concomitant]
     Dosage: 25 UG (1 TABLET), PER DAY
     Route: 048
  7. PROGRAFT [Concomitant]
     Dosage: 2 MG (2 TABLETS), PER DAY
     Route: 048
  8. STEOVIT D3 [Concomitant]
     Dosage: 1 DF (1000/ 800 MG), PER DAY

REACTIONS (5)
  - Colitis ischaemic [Unknown]
  - Acute abdomen [Unknown]
  - Megacolon [Unknown]
  - Abdominal pain [Unknown]
  - Abdominal distension [Unknown]
